APPROVED DRUG PRODUCT: ARAKODA
Active Ingredient: TAFENOQUINE SUCCINATE
Strength: EQ 100MG BASE
Dosage Form/Route: TABLET;ORAL
Application: N210607 | Product #001
Applicant: 60 DEGREES PHARMACEUTICALS INC
Approved: Aug 8, 2018 | RLD: Yes | RS: Yes | Type: RX

PATENTS:
Patent 10342791 | Expires: Dec 2, 2035
Patent 11744828 | Expires: Dec 2, 2035
Patent 10888558 | Expires: Dec 2, 2035